FAERS Safety Report 6152510-7 (Version None)
Quarter: 2009Q2

REPORT INFORMATION
  Report Type: 
  Country: None (occurrence: None)
  Receive Date: 20090413
  Receipt Date: 20090331
  Transmission Date: 20091009
  Serious: Yes (Hospitalization, Other)
  Sender: FDA-Public Use
  Company Number: US-ROCHE-432382

PATIENT
  Sex: Male

DRUGS (1)
  1. ACCUTANE [Suspect]
     Route: 048
     Dates: start: 20001003, end: 20010126

REACTIONS (8)
  - ABSCESS [None]
  - COLITIS [None]
  - CROHN'S DISEASE [None]
  - ILEITIS [None]
  - INFLAMMATORY BOWEL DISEASE [None]
  - RASH MACULO-PAPULAR [None]
  - SMALL INTESTINAL OBSTRUCTION [None]
  - SUPRAVENTRICULAR TACHYCARDIA [None]
